FAERS Safety Report 5771402-6 (Version None)
Quarter: 2008Q2

REPORT INFORMATION
  Report Type: 
  Country: None (occurrence: None)
  Receive Date: 20080610
  Receipt Date: 20080528
  Transmission Date: 20081010
  Serious: Yes (Life-Threatening, Hospitalization)
  Sender: FDA-Public Use
  Company Number: US-JNJFOC-20080302982

PATIENT
  Age: 65 Year
  Sex: Female
  Weight: 102.5 kg

DRUGS (23)
  1. DECITABINE  (DECITABINE)      LYOPHILIZED POWDER [Suspect]
     Indication: MYELODYSPLASTIC SYNDROME
     Dosage: 20 MG/M2, INTRAVENOUS
     Route: 042
     Dates: start: 20080221, end: 20080225
  2. ZOFRAN [Concomitant]
  3. VALTREX (VALACALCICLOVIR HYDROCHLORIDE) [Concomitant]
  4. TRIAMTERENE (TRIAMTERENE) [Concomitant]
  5. HYDROCHLOROTHIAZIDE [Concomitant]
  6. TOPROL-XL [Concomitant]
  7. PERIOGARD (DISPRAY NO 1) [Concomitant]
  8. OMEPRAZOLE [Concomitant]
  9. MAGNESIUM OXIDE (MAGNESIUM OXIDE) [Concomitant]
  10. LUNESTA [Concomitant]
  11. LEVOTHYROXINE SODIUM [Concomitant]
  12. LEVAQUIN [Concomitant]
  13. LASIX [Concomitant]
  14. HYDROCODONE (HYDROCODONE) [Concomitant]
  15. ACETAMINOPHEN [Concomitant]
  16. DARVON [Concomitant]
  17. CYMBALTA [Concomitant]
  18. CLARITIN [Concomitant]
  19. CELEBREX [Concomitant]
  20. AMITRIPTLINE HCL [Concomitant]
  21. ALLOPURINOL [Concomitant]
  22. ALBUTEROL [Concomitant]
  23. ADVAIR DISKUS 100/50 [Concomitant]

REACTIONS (28)
  - ANAEMIA [None]
  - ARTHRALGIA [None]
  - ATELECTASIS [None]
  - ATRIAL FIBRILLATION [None]
  - BACILLUS INFECTION [None]
  - BACTERAEMIA [None]
  - BIOPSY BONE MARROW ABNORMAL [None]
  - BLOOD BILIRUBIN INCREASED [None]
  - CARDIAC VALVE VEGETATION [None]
  - DECREASED ACTIVITY [None]
  - DIALYSIS [None]
  - GASTROINTESTINAL HAEMORRHAGE [None]
  - HYPOTENSION [None]
  - LOWER GASTROINTESTINAL HAEMORRHAGE [None]
  - MITRAL VALVE CALCIFICATION [None]
  - MYOSITIS [None]
  - PAIN IN EXTREMITY [None]
  - PNEUMONIA [None]
  - PSEUDOMONAL SEPSIS [None]
  - RECTAL HAEMORRHAGE [None]
  - RENAL FAILURE ACUTE [None]
  - RESPIRATORY DISTRESS [None]
  - RESPIRATORY FAILURE [None]
  - RETINAL DETACHMENT [None]
  - STAPHYLOCOCCAL ABSCESS [None]
  - STAPHYLOCOCCAL SEPSIS [None]
  - THROMBOCYTOPENIA [None]
  - VENTRICULAR EXTRASYSTOLES [None]
